FAERS Safety Report 7298590-7 (Version None)
Quarter: 2011Q1

REPORT INFORMATION
  Report Type: 
  Country: None (occurrence: None)
  Receive Date: 20110214
  Receipt Date: 20110214
  Transmission Date: 20110831
  Serious: No
  Sender: FDA-Public Use
  Company Number: None

PATIENT
  Sex: Female
  Weight: 80.7 kg

DRUGS (3)
  1. ELOXATIN [Suspect]
     Dosage: 121 MG
     Dates: end: 20081124
  2. FLUOROURACIL [Suspect]
     Dosage: 5208 MG
     Dates: end: 20081124
  3. LEUCOVORIN CALCIUM [Suspect]
     Dosage: 744 MG
     Dates: end: 20081124

REACTIONS (1)
  - NEUTROPHIL COUNT DECREASED [None]
